FAERS Safety Report 16710643 (Version 2)
Quarter: 2019Q3

REPORT INFORMATION
  Report Type: Spontaneous
  Country: US (occurrence: US)
  Receive Date: 20190816
  Receipt Date: 20190830
  Transmission Date: 20191004
  Serious: No
  Sender: FDA-Public Use
  Company Number: US-TORRENT-00009085

PATIENT
  Sex: Male
  Weight: 91 kg

DRUGS (1)
  1. LOSARTAN. [Suspect]
     Active Substance: LOSARTAN
     Indication: HYPERTENSION
     Dosage: TOOK 1 TABLET IN A DAY, FOR A WEEK

REACTIONS (1)
  - Drug ineffective [Unknown]
